FAERS Safety Report 4369318-5 (Version None)
Quarter: 2004Q2

REPORT INFORMATION
  Report Type: 
  Country: None (occurrence: None)
  Receive Date: 20040528
  Receipt Date: 20040517
  Transmission Date: 20050107
  Serious: Yes (Other)
  Sender: FDA-Public Use
  Company Number: US-JNJFOC-20040304241

PATIENT
  Age: 70 Year
  Sex: Female
  Weight: 67.586 kg

DRUGS (8)
  1. REMICADE [Suspect]
     Indication: RHEUMATOID ARTHRITIS
     Dosage: INTRAVENOUS
     Route: 042
  2. CAPTOPRIL [Concomitant]
  3. FURSEOMIDE (FURSEOMIDE) [Concomitant]
  4. AZATHIOPRINE [Concomitant]
  5. METHOTREXATE [Concomitant]
  6. SINGULAIR [Concomitant]
  7. ALBUTEROL [Concomitant]
  8. PREMARIN [Concomitant]

REACTIONS (6)
  - ALOPECIA [None]
  - COCCIDIOIDOMYCOSIS [None]
  - COUGH [None]
  - ONYCHOMADESIS [None]
  - TOOTH LOSS [None]
  - WEIGHT DECREASED [None]
